FAERS Safety Report 17157949 (Version 1)
Quarter: 2019Q4

REPORT INFORMATION
  Report Type: Spontaneous
  Country: US (occurrence: US)
  Receive Date: 20191216
  Receipt Date: 20191216
  Transmission Date: 20200122
  Serious: Yes (Other)
  Sender: FDA-Public Use
  Company Number: NVSC2019US037214

PATIENT
  Sex: Female

DRUGS (1)
  1. GLEEVEC [Suspect]
     Active Substance: IMATINIB MESYLATE
     Indication: SYSTEMIC MASTOCYTOSIS
     Dosage: UNK (FORMULATION: CAPSULE)
     Route: 048
     Dates: start: 2004

REACTIONS (5)
  - Bone pain [Unknown]
  - Amnesia [Unknown]
  - Abdominal discomfort [Unknown]
  - Gastrointestinal haemorrhage [Unknown]
  - Gastrointestinal polyp [Unknown]
